FAERS Safety Report 9727080 (Version 1)
Quarter: 2013Q4

REPORT INFORMATION
  Report Type: Spontaneous
  Country: US (occurrence: US)
  Receive Date: 20131203
  Receipt Date: 20131203
  Transmission Date: 20140711
  Serious: Yes (Other)
  Sender: FDA-Public Use
  Company Number: US-JHP PHARMACEUTICALS, LLC-JHP201300730

PATIENT
  Age: 29 Year
  Sex: 0

DRUGS (1)
  1. KETALAR [Suspect]
     Route: 045

REACTIONS (5)
  - Cholangitis [Unknown]
  - Hepatomegaly [Unknown]
  - Micturition urgency [Unknown]
  - Dysuria [Unknown]
  - Haematuria [Unknown]
